FAERS Safety Report 13535186 (Version 2)
Quarter: 2017Q3

REPORT INFORMATION
  Report Type: Spontaneous
  Country: US (occurrence: US)
  Receive Date: 20170511
  Receipt Date: 20170810
  Transmission Date: 20171127
  Serious: No
  Sender: FDA-Public Use
  Company Number: US-VIFOR (INTERNATIONAL) INC.-VIT-2017-04219

PATIENT
  Age: 85 Year
  Sex: Male

DRUGS (11)
  1. METOLAZONE. [Concomitant]
     Active Substance: METOLAZONE
  2. COREG [Concomitant]
     Active Substance: CARVEDILOL
  3. ELIQUIS [Concomitant]
     Active Substance: APIXABAN
  4. FOLIC ACID. [Concomitant]
     Active Substance: FOLIC ACID
  5. ACETYLSALICYLIC ACID [Concomitant]
     Active Substance: ASPIRIN
  6. BIFIDOBACTERIUM LACTIS [Concomitant]
     Active Substance: BIFIDOBACTERIUM ANIMALIS LACTIS
  7. SIMVASTATIN. [Concomitant]
     Active Substance: SIMVASTATIN
  8. VELTASSA [Suspect]
     Active Substance: PATIROMER
     Indication: HYPERKALAEMIA
     Route: 048
     Dates: start: 20170331
  9. ENTRESTO [Concomitant]
     Active Substance: SACUBITRIL\VALSARTAN
  10. ASCORBIC ACID. [Concomitant]
     Active Substance: ASCORBIC ACID
  11. FUROSEMIDE. [Concomitant]
     Active Substance: FUROSEMIDE

REACTIONS (7)
  - Diarrhoea [Unknown]
  - Abdominal discomfort [Unknown]
  - Dyspnoea [Unknown]
  - Product use issue [Unknown]
  - Constipation [Unknown]
  - Neck pain [Unknown]
  - Back pain [Unknown]

NARRATIVE: CASE EVENT DATE: 2017
